FAERS Safety Report 4826937-7 (Version None)
Quarter: 2005Q4

REPORT INFORMATION
  Report Type: 
  Country: None (occurrence: None)
  Receive Date: 20051014
  Receipt Date: 20050721
  Transmission Date: 20060501
  Serious: No
  Sender: FDA-Public Use
  Company Number: 2005SP001989

PATIENT
  Age: 52 Year
  Sex: Female
  Weight: 65.318 kg

DRUGS (2)
  1. LUNESTA [Suspect]
     Dosage: 1.5 MG;HS;ORAL, 3 MG;HS;ORAL
     Route: 048
     Dates: start: 20050101, end: 20050101
  2. LUNESTA [Suspect]
     Dosage: 1.5 MG;HS;ORAL, 3 MG;HS;ORAL
     Route: 048
     Dates: start: 20050101

REACTIONS (2)
  - ANXIETY [None]
  - PARADOXICAL DRUG REACTION [None]
